FAERS Safety Report 15106673 (Version 3)
Quarter: 2019Q1

REPORT INFORMATION
  Report Type: Spontaneous
  Country: US (occurrence: US)
  Receive Date: 20180704
  Receipt Date: 20190222
  Transmission Date: 20190417
  Serious: No
  Sender: FDA-Public Use
  Company Number: US-SA-2018SA172582

PATIENT
  Age: 48 Year
  Sex: Female
  Weight: 56.69 kg

DRUGS (8)
  1. VITAMIN D3 [Concomitant]
     Active Substance: CHOLECALCIFEROL
  2. VITAMIN C ACID [Concomitant]
     Active Substance: ASCORBIC ACID
  3. ASPIRIN (E.C.) [Concomitant]
     Active Substance: ASPIRIN
  4. VITAMIN B12 [Concomitant]
     Active Substance: CYANOCOBALAMIN
  5. AUBAGIO [Suspect]
     Active Substance: TERIFLUNOMIDE
     Indication: MULTIPLE SCLEROSIS
     Dosage: 14 MG, QD
     Route: 048
     Dates: start: 201805
  6. CLARITIN [CLARITHROMYCIN] [Concomitant]
     Active Substance: CLARITHROMYCIN
  7. FOLBIC [Concomitant]
     Active Substance: CYANOCOBALAMIN\FOLIC ACID\PYRIDOXINE
  8. FLUTICASONE. [Concomitant]
     Active Substance: FLUTICASONE

REACTIONS (13)
  - Fatigue [Unknown]
  - Malaise [Recovering/Resolving]
  - Vertigo [Recovering/Resolving]
  - Back pain [Unknown]
  - Sleep disorder [Unknown]
  - Depression [Recovering/Resolving]
  - Decreased interest [Recovering/Resolving]
  - Balance disorder [Recovering/Resolving]
  - Diarrhoea [Unknown]
  - Depressed mood [Recovering/Resolving]
  - Paraesthesia [Unknown]
  - Sensory disturbance [Unknown]
  - Abdominal discomfort [Unknown]

NARRATIVE: CASE EVENT DATE: 201805
